FAERS Safety Report 13992838 (Version 2)
Quarter: 2017Q3

REPORT INFORMATION
  Report Type: Spontaneous
  Country: BG (occurrence: BG)
  Receive Date: 20170920
  Receipt Date: 20170927
  Transmission Date: 20171128
  Serious: Yes (Life-Threatening, Other)
  Sender: FDA-Public Use
  Company Number: BG-BAUSCH-BL-2017-027345

PATIENT
  Age: 43 Year
  Sex: Female

DRUGS (5)
  1. CISPLATIN. [Suspect]
     Active Substance: CISPLATIN
     Indication: SQUAMOUS CELL CARCINOMA OF LUNG
  2. FLUOROURACIL. [Suspect]
     Active Substance: FLUOROURACIL
     Indication: AMELOBLASTOMA
     Dosage: 1000 MILLIGRAM(S)/SQUARE METER, DAILY?ON DAY 1-4 (3 WEEK)
     Route: 065
     Dates: start: 2016
  3. PEGFILGRASTIM [Concomitant]
     Active Substance: PEGFILGRASTIM
     Indication: PRODUCT USED FOR UNKNOWN INDICATION
     Dates: start: 2016
  4. CISPLATIN. [Suspect]
     Active Substance: CISPLATIN
     Indication: AMELOBLASTOMA
     Dosage: 100 MILLIGRAM(S)/SQUARE METER
     Route: 065
     Dates: start: 2016
  5. FLUOROURACIL. [Suspect]
     Active Substance: FLUOROURACIL
     Indication: SQUAMOUS CELL CARCINOMA OF LUNG

REACTIONS (2)
  - Bone marrow failure [Unknown]
  - Off label use [Unknown]
